FAERS Safety Report 8846278 (Version 1)
Quarter: 2012Q4

REPORT INFORMATION
  Report Type: 
  Country: US (occurrence: US)
  Receive Date: 20121018
  Receipt Date: 20121018
  Transmission Date: 20130627
  Serious: No
  Sender: FDA-Public Use
  Company Number: US-009507513-1210USA006630

PATIENT
  Sex: Female

DRUGS (1)
  1. SINGULAIR [Suspect]
     Dosage: 1 DF, qd
     Route: 048
     Dates: start: 201208, end: 20121008

REACTIONS (4)
  - Dyspnoea [Unknown]
  - Hypersensitivity [Unknown]
  - Apathy [Unknown]
  - Insomnia [Unknown]
